FAERS Safety Report 9189236 (Version 1)
Quarter: 2013Q1

REPORT INFORMATION
  Report Type: Spontaneous
  Country: US (occurrence: None)
  Receive Date: 20130322
  Receipt Date: 20130322
  Transmission Date: 20140127
  Serious: Yes (Death)
  Sender: FDA-Public Use
  Company Number: TPA20130A2240

PATIENT
  Age: 78 Year
  Sex: Female

DRUGS (8)
  1. ADENURIC (FEBUXOSTAT) [Suspect]
     Indication: HYPERURICAEMIA
     Route: 048
     Dates: start: 20130123, end: 20130126
  2. CALCITRIOLOL (CALCITRIOL) [Concomitant]
  3. METOCAL VIT D3 (COLECALCIFEROL, CALCIUM CARBONATE) [Concomitant]
  4. LASIX (FUROSEMIDE) [Concomitant]
  5. FERROGRAD (FERROUS SULFATE) [Concomitant]
  6. LUVION (CANRENOIC ACID) [Concomitant]
  7. DELTACORTENE (PREDNISONE) [Concomitant]
  8. ADRONAT (ALENDRONATE SODIUM) [Concomitant]

REACTIONS (2)
  - Renal failure [None]
  - Hypersensitivity [None]
